FAERS Safety Report 4732120-6 (Version None)
Quarter: 2005Q3

REPORT INFORMATION
  Report Type: 
  Country: None (occurrence: None)
  Receive Date: 20050721
  Receipt Date: 20050606
  Transmission Date: 20060218
  Serious: No
  Sender: FDA-Public Use
  Company Number: 2005SP001248

PATIENT
  Age: 62 Year
  Sex: Female

DRUGS (13)
  1. LUNESTA [Suspect]
     Indication: INSOMNIA
     Dosage: 2 MG;HS;ORAL ; 3 MG;HS;ORAL
     Route: 048
     Dates: start: 20050501, end: 20050501
  2. LUNESTA [Suspect]
     Indication: INSOMNIA
     Dosage: 2 MG;HS;ORAL ; 3 MG;HS;ORAL
     Route: 048
     Dates: start: 20050501
  3. LEVOXYL [Concomitant]
  4. ALLEGRA [Concomitant]
  5. LIPITOR [Concomitant]
  6. FLOVENT [Concomitant]
  7. TRAMADOL HCL [Concomitant]
  8. RANITIDINE [Concomitant]
  9. GLUCOSAMINE W/CHONDROITIN [Concomitant]
  10. CALCIUM GLUCONATE [Concomitant]
  11. MAGNESIUM CITRATE [Concomitant]
  12. VITAMIN E [Concomitant]
  13. VITAMIN B6 [Concomitant]

REACTIONS (3)
  - DRUG INEFFECTIVE [None]
  - DYSGEUSIA [None]
  - INSOMNIA [None]
